FAERS Safety Report 18405401 (Version 1)
Quarter: 2020Q4

REPORT INFORMATION
  Report Type: Spontaneous
  Country: US (occurrence: US)
  Receive Date: 20201020
  Receipt Date: 20201020
  Transmission Date: 20210114
  Serious: Yes (Hospitalization, Other)
  Sender: FDA-Public Use
  Company Number: US-ALVOGEN-2020-ALVOGEN-114934

PATIENT
  Age: 70 Year
  Sex: Female

DRUGS (12)
  1. DEXMEDETOMIDINE. [Suspect]
     Active Substance: DEXMEDETOMIDINE
     Indication: SEDATIVE THERAPY
  2. PROPOFOL. [Suspect]
     Active Substance: PROPOFOL
     Indication: SEDATIVE THERAPY
  3. QUETIAPINE. [Concomitant]
     Active Substance: QUETIAPINE
     Indication: AGITATION
     Dosage: UP TO 175 MG DAILY
  4. MIDAZOLAM. [Suspect]
     Active Substance: MIDAZOLAM
     Indication: SEDATIVE THERAPY
  5. KETAMINE HYDROCHLORIDE. [Suspect]
     Active Substance: KETAMINE HYDROCHLORIDE
     Indication: SEDATIVE THERAPY
  6. AMOXICILLIN AND CLAVULANATE POTASSIUM [Concomitant]
     Active Substance: AMOXICILLIN\CLAVULANATE POTASSIUM
     Indication: INFECTION
  7. CEFTRIAXONE. [Concomitant]
     Active Substance: CEFTRIAXONE
     Indication: BACTERIAL INFECTION
  8. MELATONIN [Concomitant]
     Active Substance: MELATONIN
     Indication: AGITATION
     Dosage: NIGHTLY
  9. HYDROMORPHONE [Suspect]
     Active Substance: HYDROMORPHONE
     Indication: SEDATIVE THERAPY
  10. OXYCODONE [Suspect]
     Active Substance: OXYCODONE
     Indication: SEDATIVE THERAPY
     Dosage: UP TO 60 MG DAILY
  11. AZITHROMYCIN ANHYDROUS. [Concomitant]
     Active Substance: AZITHROMYCIN ANHYDROUS
     Indication: INFECTION
  12. CHLORDIAZEPOXIDE. [Suspect]
     Active Substance: CHLORDIAZEPOXIDE
     Indication: SEDATIVE THERAPY
     Dosage: UP TO 30 MG DAILY

REACTIONS (1)
  - Intensive care unit delirium [Recovered/Resolved]
